FAERS Safety Report 10550493 (Version 1)
Quarter: 2014Q4

REPORT INFORMATION
  Report Type: Spontaneous
  Country: US (occurrence: US)
  Receive Date: 20141029
  Receipt Date: 20141029
  Transmission Date: 20150529
  Serious: No
  Sender: FDA-Public Use
  Company Number: US-TEVA-491677USA

PATIENT
  Sex: Female
  Weight: 86.26 kg

DRUGS (2)
  1. GEODON [Concomitant]
     Active Substance: ZIPRASIDONE HYDROCHLORIDE\ZIPRASIDONE MESYLATE
  2. PROVIGIL [Suspect]
     Active Substance: MODAFINIL
     Indication: DEPRESSION
     Dates: start: 2004

REACTIONS (3)
  - Depression [Unknown]
  - Somnolence [Unknown]
  - Depressed mood [Unknown]
